FAERS Safety Report 7348106-1 (Version None)
Quarter: 2011Q1

REPORT INFORMATION
  Report Type: 
  Country: None (occurrence: None)
  Receive Date: 20110311
  Receipt Date: 20110211
  Transmission Date: 20110831
  Serious: No
  Sender: FDA-Public Use
  Company Number: US-B.I. PHARMACEUTICALS,INC./RIDGEFIELD-2011-BP-01346BP

PATIENT
  Sex: Female

DRUGS (9)
  1. PRADAXA [Suspect]
     Indication: ATRIAL FIBRILLATION
     Dosage: 300 MG
     Route: 048
     Dates: start: 20110114
  2. FLUCXETINE [Concomitant]
     Dosage: 40 MG
     Route: 048
  3. BUPROPION HCL [Concomitant]
     Indication: DEPRESSION
     Dosage: 300 MG
     Route: 048
  4. SIMVASTATIN [Concomitant]
     Indication: BLOOD CHOLESTEROL INCREASED
     Dosage: 40 MG
     Route: 048
  5. LISINOPRIL [Concomitant]
     Dosage: 40 MG
     Route: 048
     Dates: start: 20110114
  6. IBUPROFEN PM [Concomitant]
     Dosage: AT NIGHT
     Route: 048
  7. DILTIAZEM [Concomitant]
     Dosage: 480 MG
     Route: 048
  8. LISINOPRIL [Concomitant]
     Indication: HYPERTENSION
     Route: 048
     Dates: end: 20110113
  9. COTESTIPOL [Concomitant]
     Indication: COLON OPERATION
     Dosage: 2 G
     Route: 048

REACTIONS (2)
  - ABDOMINAL PAIN [None]
  - FATIGUE [None]
